FAERS Safety Report 5649751-1 (Version None)
Quarter: 2008Q1

REPORT INFORMATION
  Report Type: 
  Country: None (occurrence: None)
  Receive Date: 20080304
  Receipt Date: 20080221
  Transmission Date: 20080703
  Serious: Yes (Other)
  Sender: FDA-Public Use
  Company Number: AU-PFIZER INC-2008016865

PATIENT
  Sex: Male

DRUGS (1)
  1. SUTENT [Suspect]

REACTIONS (4)
  - DISEASE PROGRESSION [None]
  - DYSPEPSIA [None]
  - NEOPLASM MALIGNANT [None]
  - OESOPHAGITIS [None]
